FAERS Safety Report 9962681 (Version 2)
Quarter: 2014Q1

REPORT INFORMATION
  Report Type: Report from Study
  Country: US (occurrence: US)
  Receive Date: 20140305
  Receipt Date: 20140305
  Transmission Date: 20141002
  Serious: No
  Sender: FDA-Public Use
  Company Number: US-ABBVIE-13P-163-1033343-00

PATIENT
  Age: 48 Year
  Sex: Female

DRUGS (8)
  1. HUMIRA [Suspect]
     Indication: PSORIASIS
     Route: 058
     Dates: start: 201206
  2. METHOTREXATE [Concomitant]
     Indication: PRODUCT USED FOR UNKNOWN INDICATION
     Dosage: .8CC  INJECTION EVERY WEEK
  3. METHOTREXATE [Concomitant]
     Dosage: 1 CC INJECTION EACH WEEK
  4. GABAPENTIN [Concomitant]
     Indication: PRODUCT USED FOR UNKNOWN INDICATION
  5. METHOCARBAMOL [Concomitant]
     Indication: PRODUCT USED FOR UNKNOWN INDICATION
  6. FLONASE [Concomitant]
     Indication: PRODUCT USED FOR UNKNOWN INDICATION
  7. METHOTREXATE [Concomitant]
     Indication: PRODUCT USED FOR UNKNOWN INDICATION
     Dosage: 6 PILLS/WEEKLY
     Route: 048
  8. METHOTREXATE [Concomitant]
     Dosage: 8 TABS/WEEK
     Route: 048

REACTIONS (10)
  - Skin haemorrhage [Not Recovered/Not Resolved]
  - Skin haemorrhage [Not Recovered/Not Resolved]
  - Gait disturbance [Not Recovered/Not Resolved]
  - Therapy change [Recovered/Resolved]
  - Psoriasis [Unknown]
  - Pain [Unknown]
  - Neuropathy peripheral [Unknown]
  - Arthralgia [Unknown]
  - Pain [Unknown]
  - Local swelling [Unknown]
